FAERS Safety Report 14295869 (Version 1)
Quarter: 2017Q4

REPORT INFORMATION
  Report Type: Spontaneous
  Country: US (occurrence: US)
  Receive Date: 20171218
  Receipt Date: 20171218
  Transmission Date: 20180321
  Serious: Yes (Hospitalization)
  Sender: FDA-Public Use
  Company Number: US-FRESENIUS MEDICAL CARE RENAL THERAPIES GROUP-FMC-1712-001538

PATIENT
  Sex: Female
  Weight: 145.2 kg

DRUGS (6)
  1. RENVELA [Concomitant]
     Active Substance: SEVELAMER CARBONATE
  2. DOCUSATE SODIUM. [Concomitant]
     Active Substance: DOCUSATE SODIUM
  3. PROTONIX [Concomitant]
     Active Substance: PANTOPRAZOLE SODIUM
     Route: 048
  4. DELFLEX [Suspect]
     Active Substance: CALCIUM CHLORIDE\DEXTROSE\MAGNESIUM CHLORIDE\SODIUM CHLORIDE\SODIUM LACTATE
     Indication: END STAGE RENAL DISEASE
     Route: 033
  5. HUMALOG [Concomitant]
     Active Substance: INSULIN LISPRO
  6. RENAPLEX [Concomitant]

REACTIONS (2)
  - Peritonitis bacterial [Unknown]
  - Sepsis [Unknown]
